FAERS Safety Report 5258938-1 (Version None)
Quarter: 2007Q1

REPORT INFORMATION
  Report Type: 
  Country: None (occurrence: None)
  Receive Date: 20070308
  Receipt Date: 20070221
  Transmission Date: 20070707
  Serious: Yes (Other)
  Sender: FDA-Public Use
  Company Number: FRWYE747322FEB07

PATIENT
  Age: 59 Year
  Sex: Female

DRUGS (2)
  1. ENBREL [Suspect]
     Indication: PSORIATIC ARTHROPATHY
     Route: 058
     Dates: start: 20060501, end: 20061201
  2. ENBREL [Suspect]
     Route: 058
     Dates: start: 20061201

REACTIONS (2)
  - BLOOD PRESSURE SYSTOLIC INCREASED [None]
  - PALPITATIONS [None]
